FAERS Safety Report 19567913 (Version 37)
Quarter: 2025Q2

REPORT INFORMATION
  Report Type: Report from Study
  Country: CA (occurrence: CA)
  Receive Date: 20210715
  Receipt Date: 20250610
  Transmission Date: 20250716
  Serious: Yes (Death, Hospitalization, Other)
  Sender: TAKEDA
  Company Number: CA-TAKEDA-2021TUS041456

PATIENT
  Age: 57 Year
  Sex: Female
  Weight: 55 kg

DRUGS (24)
  1. TEDUGLUTIDE [Suspect]
     Active Substance: TEDUGLUTIDE
     Indication: Short-bowel syndrome
     Dosage: 2.39 MILLIGRAM, QD
     Dates: start: 20210625
  2. TEDUGLUTIDE [Suspect]
     Active Substance: TEDUGLUTIDE
  3. TEDUGLUTIDE [Suspect]
     Active Substance: TEDUGLUTIDE
     Dosage: UNK UNK, QD
  4. TEDUGLUTIDE [Suspect]
     Active Substance: TEDUGLUTIDE
     Dosage: 2.39 MILLIGRAM, QD
  5. TEDUGLUTIDE [Suspect]
     Active Substance: TEDUGLUTIDE
     Dosage: 2.75 MILLIGRAM, QD
  6. TEDUGLUTIDE [Suspect]
     Active Substance: TEDUGLUTIDE
  7. TEDUGLUTIDE [Suspect]
     Active Substance: TEDUGLUTIDE
     Dosage: 2.39 MILLIGRAM, QD
     Dates: start: 20220124
  8. TEDUGLUTIDE [Suspect]
     Active Substance: TEDUGLUTIDE
     Dosage: 2.75 MILLIGRAM, QD
  9. TEDUGLUTIDE [Suspect]
     Active Substance: TEDUGLUTIDE
     Dosage: 2.17 MILLIGRAM, QD
  10. TEDUGLUTIDE [Suspect]
     Active Substance: TEDUGLUTIDE
     Dosage: 2.17 MILLIGRAM, QD
  11. PANTOPRAZOLE [Concomitant]
     Active Substance: PANTOPRAZOLE
     Dosage: 40 MILLIGRAM, BID
  12. PANTOPRAZOLE [Concomitant]
     Active Substance: PANTOPRAZOLE
     Dosage: 40 MILLIGRAM, TID
  13. PANTOPRAZOLE [Concomitant]
     Active Substance: PANTOPRAZOLE
     Dosage: 40 MILLIGRAM, BID
  14. ENOXAPARIN [Concomitant]
     Active Substance: ENOXAPARIN
     Dosage: 8000 INTERNATIONAL UNIT, BID
  15. ENOXAPARIN [Concomitant]
     Active Substance: ENOXAPARIN
     Dosage: 8000 INTERNATIONAL UNIT, QD
     Dates: start: 201704
  16. SPIRIVA [Concomitant]
     Active Substance: TIOTROPIUM BROMIDE MONOHYDRATE
  17. BUPRENORPHINE [Concomitant]
     Active Substance: BUPRENORPHINE
  18. Iv Globulin Sn [Concomitant]
  19. TPN [Concomitant]
     Active Substance: AMINO ACIDS\DEXTROSE\ELECTROLYTES NOS\SOYBEAN OIL
     Dosage: 3500 MILLILITER, QD
     Dates: start: 201704
  20. TPN [Concomitant]
     Active Substance: AMINO ACIDS\DEXTROSE\ELECTROLYTES NOS\SOYBEAN OIL
     Dosage: 3400 MILLILITER, QD
     Dates: start: 20210923
  21. TPN [Concomitant]
     Active Substance: AMINO ACIDS\DEXTROSE\ELECTROLYTES NOS\SOYBEAN OIL
     Dosage: 3500 MILLILITER, QD
     Dates: start: 20211014
  22. TPN [Concomitant]
     Active Substance: AMINO ACIDS\DEXTROSE\ELECTROLYTES NOS\SOYBEAN OIL
     Dosage: 2500 MILLILITER, QD
     Dates: start: 20230126
  23. TPN [Concomitant]
     Active Substance: AMINO ACIDS\DEXTROSE\ELECTROLYTES NOS\SOYBEAN OIL
  24. TPN [Concomitant]
     Active Substance: AMINO ACIDS\DEXTROSE\ELECTROLYTES NOS\SOYBEAN OIL
     Dosage: 2500 MILLILITER, QD
     Dates: start: 20241011

REACTIONS (44)
  - Death [Fatal]
  - Blood potassium increased [Not Recovered/Not Resolved]
  - Pain [Not Recovered/Not Resolved]
  - Asthenia [Recovering/Resolving]
  - Eating disorder [Not Recovered/Not Resolved]
  - Respiratory failure [Unknown]
  - Chronic obstructive pulmonary disease [Unknown]
  - Pneumonia [Unknown]
  - Catheter site infection [Recovering/Resolving]
  - Pollakiuria [Recovering/Resolving]
  - Weight fluctuation [Unknown]
  - Faeces hard [Recovering/Resolving]
  - Bowel movement irregularity [Recovered/Resolved]
  - Hypophagia [Recovering/Resolving]
  - Nocturia [Unknown]
  - Back pain [Recovered/Resolved]
  - Stoma complication [Unknown]
  - Abnormal faeces [Not Recovered/Not Resolved]
  - Constipation [Unknown]
  - Proctalgia [Recovered/Resolved]
  - Weight increased [Unknown]
  - Urine output increased [Unknown]
  - Dry skin [Not Recovered/Not Resolved]
  - Dehydration [Not Recovered/Not Resolved]
  - Dysuria [Recovering/Resolving]
  - Complication of device insertion [Recovering/Resolving]
  - Abdominal discomfort [Not Recovered/Not Resolved]
  - Gastrointestinal stoma output increased [Not Recovered/Not Resolved]
  - Gastrointestinal disorder [Not Recovered/Not Resolved]
  - Hernia [Not Recovered/Not Resolved]
  - Abdominal hernia [Not Recovered/Not Resolved]
  - Scar [Not Recovered/Not Resolved]
  - Malaise [Unknown]
  - COVID-19 [Not Recovered/Not Resolved]
  - Insurance issue [Unknown]
  - Needle issue [Unknown]
  - Weight decreased [Unknown]
  - Device breakage [Unknown]
  - Device issue [Unknown]
  - Product use issue [Unknown]
  - Product dose omission issue [Unknown]
  - Insomnia [Not Recovered/Not Resolved]
  - Flatulence [Unknown]
  - Abdominal pain [Recovered/Resolved]

NARRATIVE: CASE EVENT DATE: 20210628
